FAERS Safety Report 5076279-2 (Version None)
Quarter: 2006Q3

REPORT INFORMATION
  Report Type: 
  Country: None (occurrence: None)
  Receive Date: 20060804
  Receipt Date: 20060728
  Transmission Date: 20061208
  Serious: Yes (Disabling)
  Sender: FDA-Public Use
  Company Number: E2090-00040-SPO-JP

PATIENT
  Age: 76 Year
  Sex: Female

DRUGS (12)
  1. ZONISAMIDE [Suspect]
     Indication: EPILEPSY
     Dosage: 200 MG, ORAL
     Route: 048
     Dates: start: 19970101, end: 20060703
  2. ALESION(EPINASTINE HYDROCHLORIDE) [Concomitant]
  3. DEPAKENE [Concomitant]
  4. TICLOPIDINE HCL [Concomitant]
  5. CLONAZEPAM [Concomitant]
  6. PRAVASTATIN [Concomitant]
  7. MUCOSTA (REBAMIPIDE) [Concomitant]
  8. BIOFERMIN (LACTOBACILLUS SPOROGENES) [Concomitant]
  9. GRANDAXIN (TOFISOPAM) [Concomitant]
  10. POLITOSE [Concomitant]
  11. PURSENNID (SENNA LEAF) [Concomitant]
  12. GASMOTIN (MOSAPRIDE CITRATE) [Concomitant]

REACTIONS (1)
  - TOXIC SKIN ERUPTION [None]
